FAERS Safety Report 8588245-0 (Version None)
Quarter: 2012Q3

REPORT INFORMATION
  Report Type: 
  Country: None (occurrence: None)
  Receive Date: 20120813
  Receipt Date: 20120801
  Transmission Date: 20120928
  Serious: Yes (Hospitalization)
  Sender: FDA-Public Use
  Company Number: US-BAYER-2012-046891

PATIENT
  Age: 48 Year
  Sex: Female
  Weight: 85.714 kg

DRUGS (3)
  1. ANTIDIARRHOEAL MICROORGANISMS [Concomitant]
     Indication: DIABETES MELLITUS
     Dosage: UNK
     Dates: start: 20070101
  2. YAZ [Suspect]
     Dosage: UNK
     Dates: start: 20070701, end: 20091201
  3. METFORMIN HYDROCHLORIDE [Concomitant]
     Indication: DIABETES MELLITUS
     Dosage: UNK
     Dates: start: 20070101

REACTIONS (8)
  - ANHEDONIA [None]
  - PAIN IN EXTREMITY [None]
  - OEDEMA PERIPHERAL [None]
  - INJURY [None]
  - PULMONARY EMBOLISM [None]
  - DEEP VEIN THROMBOSIS [None]
  - ANXIETY [None]
  - PAIN [None]
